FAERS Safety Report 4330945-2 (Version None)
Quarter: 2004Q1

REPORT INFORMATION
  Report Type: 
  Country: None (occurrence: None)
  Receive Date: 20040330
  Receipt Date: 20040317
  Transmission Date: 20041129
  Serious: Yes (Death, Other)
  Sender: FDA-Public Use
  Company Number: USA-2004-0013925

PATIENT
  Age: 3 Year
  Sex: Female

DRUGS (1)
  1. CEFDITOREN PIVOXIL (SIMILAR  TO NDA 21-222) (CEFDITOREN PIVOXIL) [Suspect]
     Indication: UPPER RESPIRATORY TRACT INFLAMMATION

REACTIONS (5)
  - HAEMORRHAGIC DIATHESIS [None]
  - HYPOXIA [None]
  - MEDICAL DEVICE COMPLICATION [None]
  - PLATELET COUNT DECREASED [None]
  - TOXIC EPIDERMAL NECROLYSIS [None]
